FAERS Safety Report 5642367-2 (Version None)
Quarter: 2008Q1

REPORT INFORMATION
  Report Type: 
  Country: None (occurrence: None)
  Receive Date: 20080227
  Receipt Date: 20080227
  Transmission Date: 20080703
  Serious: Yes (Hospitalization)
  Sender: FDA-Public Use
  Company Number: None

PATIENT
  Sex: Female
  Weight: 107.5025 kg

DRUGS (9)
  1. ASPIRIN [Suspect]
     Dosage: 81 MG PO QD STARTED 3 MONTHS AGO
     Route: 048
  2. JANUMET [Concomitant]
  3. DILTIAZEM [Concomitant]
  4. IRON [Concomitant]
  5. ACTOS [Concomitant]
  6. GLIMEPIRIDE [Concomitant]
  7. LOVASTATIN [Concomitant]
  8. TRIAMTERENE AND HYDROCHLOROTHIAZIDE [Concomitant]
  9. ENALAPRIL MALEATE [Concomitant]

REACTIONS (4)
  - DIZZINESS [None]
  - HAEMATEMESIS [None]
  - MELAENA [None]
  - NAUSEA [None]
